FAERS Safety Report 21172537 (Version 1)
Quarter: 2022Q3

REPORT INFORMATION
  Report Type: Spontaneous
  Country: QA (occurrence: None)
  Receive Date: 20220804
  Receipt Date: 20220804
  Transmission Date: 20221026
  Serious: Yes (Hospitalization, Other)
  Sender: FDA-Public Use
  Company Number: QA-JNJFOC-20210219390

PATIENT
  Age: 49 Year
  Sex: Male

DRUGS (9)
  1. KETAMINE [Suspect]
     Active Substance: KETAMINE
     Indication: Induction of anaesthesia
     Dosage: UNKNOWN
     Route: 065
  2. REMIFENTANIL [Suspect]
     Active Substance: REMIFENTANIL
     Indication: Maintenance of anaesthesia
     Dosage: TARGET-CONTROLLED INFUSION
     Route: 065
  3. PROPOFOL [Suspect]
     Active Substance: PROPOFOL
     Indication: Maintenance of anaesthesia
     Dosage: TARGET-CONTROLLED INFUSION
     Route: 065
  4. FENTANYL [Suspect]
     Active Substance: FENTANYL
     Indication: Induction of anaesthesia
     Dosage: UNKNOWN
     Route: 065
  5. FENTANYL [Suspect]
     Active Substance: FENTANYL
     Indication: General anaesthesia
  6. ETOMIDATE [Suspect]
     Active Substance: ETOMIDATE
     Indication: General anaesthesia
     Dosage: UNKNOWN
     Route: 065
  7. ETOMIDATE [Suspect]
     Active Substance: ETOMIDATE
     Indication: Induction of anaesthesia
  8. ROCURONIUM [Concomitant]
     Active Substance: ROCURONIUM BROMIDE
     Indication: Product used for unknown indication
     Dosage: UNKNOWN
     Route: 065
  9. CEFAZOLIN [Concomitant]
     Active Substance: CEFAZOLIN
     Indication: Product used for unknown indication
     Dosage: UNKNOWN
     Route: 065

REACTIONS (2)
  - Diabetes insipidus [Recovered/Resolved]
  - Hypernatraemia [Recovered/Resolved]
